FAERS Safety Report 13246417 (Version 2)
Quarter: 2017Q1

REPORT INFORMATION
  Report Type: Spontaneous
  Country: GB (occurrence: GB)
  Receive Date: 20170217
  Receipt Date: 20170306
  Transmission Date: 20170428
  Serious: Yes (Other)
  Sender: FDA-Public Use
  Company Number: GB-JNJFOC-20170215219

PATIENT
  Age: 40 Year
  Sex: Female

DRUGS (1)
  1. OVEX [Suspect]
     Active Substance: MEBENDAZOLE
     Indication: GASTROINTESTINAL DISORDER
     Route: 048

REACTIONS (2)
  - Product selection error [Unknown]
  - Drug ineffective [Unknown]
